FAERS Safety Report 12160051 (Version 1)
Quarter: 2016Q1

REPORT INFORMATION
  Report Type: Spontaneous
  Country: US (occurrence: US)
  Receive Date: 20160308
  Receipt Date: 20160308
  Transmission Date: 20160526
  Serious: Yes (Hospitalization)
  Sender: FDA-Public Use
  Company Number: US-ELI_LILLY_AND_COMPANY-US201603001763

PATIENT
  Age: 66 Year
  Sex: Female

DRUGS (17)
  1. CARBOPLATIN. [Concomitant]
     Active Substance: CARBOPLATIN
     Indication: MESOTHELIOMA
     Dosage: UNK
     Route: 042
     Dates: start: 201508
  2. POTASSIUM CHLORIDE. [Concomitant]
     Active Substance: POTASSIUM CHLORIDE
  3. PEPCID                             /00305201/ [Concomitant]
     Active Substance: ALUMINUM HYDROXIDE\MAGNESIUM CARBONATE
  4. SYNTHROID [Concomitant]
     Active Substance: LEVOTHYROXINE SODIUM
  5. EXCEDRIN MIGRAINE [Concomitant]
     Active Substance: ACETAMINOPHEN\ASPIRIN\CAFFEINE
     Dosage: UNK, PRN
  6. RECLAST [Concomitant]
     Active Substance: ZOLEDRONIC ACID
  7. ALIMTA [Suspect]
     Active Substance: PEMETREXED DISODIUM
     Indication: MESOTHELIOMA
     Dosage: 630 MG, CYCLICAL EVERY 21 DAYS
     Route: 042
     Dates: start: 201508
  8. CARAFATE [Concomitant]
     Active Substance: SUCRALFATE
  9. NASONEX [Concomitant]
     Active Substance: MOMETASONE FUROATE
  10. ALIMTA [Suspect]
     Active Substance: PEMETREXED DISODIUM
     Dosage: 560 MG, CYCLICAL EVERY 21 DAYS
     Route: 065
     Dates: start: 201510
  11. FLONASE                            /00908302/ [Concomitant]
     Active Substance: MOMETASONE FUROATE
  12. FOLIC ACID. [Concomitant]
     Active Substance: FOLIC ACID
  13. MAGNESIUM OXIDE. [Concomitant]
     Active Substance: MAGNESIUM OXIDE
  14. SPIRONOLACTONE. [Concomitant]
     Active Substance: SPIRONOLACTONE
  15. VITAMIN D [Concomitant]
     Active Substance: CHOLECALCIFEROL
  16. SINGULAIR [Concomitant]
     Active Substance: MONTELUKAST SODIUM
  17. ELIQUIS [Concomitant]
     Active Substance: APIXABAN

REACTIONS (5)
  - Supraventricular tachycardia [Unknown]
  - Atrial flutter [Unknown]
  - Atrial fibrillation [Unknown]
  - Diarrhoea [Unknown]
  - Off label use [Unknown]

NARRATIVE: CASE EVENT DATE: 20160206
